FAERS Safety Report 24411684 (Version 1)
Quarter: 2024Q4

REPORT INFORMATION
  Report Type: Spontaneous
  Country: US (occurrence: None)
  Receive Date: 20241007
  Receipt Date: 20241007
  Transmission Date: 20250115
  Serious: Yes (Other)
  Sender: Public
  Company Number: None

PATIENT
  Age: 30 Year
  Sex: Female
  Weight: 76.5 kg

DRUGS (1)
  1. OCREVUS [Suspect]
     Active Substance: OCRELIZUMAB
     Indication: Multiple sclerosis
     Dosage: OTHER FREQUENCY : WEEK 0 AND 2;?
     Route: 042
     Dates: start: 20240930, end: 20240930

REACTIONS (2)
  - Joint swelling [None]
  - Oedema peripheral [None]

NARRATIVE: CASE EVENT DATE: 20241002
